FAERS Safety Report 5602679-5 (Version None)
Quarter: 2008Q1

REPORT INFORMATION
  Report Type: 
  Country: None (occurrence: None)
  Receive Date: 20080125
  Receipt Date: 20080114
  Transmission Date: 20080703
  Serious: Yes (Other)
  Sender: FDA-Public Use
  Company Number: TN-WYE-H02022608

PATIENT
  Age: 71 Year
  Sex: Female

DRUGS (4)
  1. CORDARONE [Suspect]
     Indication: ATRIAL FIBRILLATION
     Route: 065
     Dates: start: 20030612, end: 20030615
  2. CORDARONE [Suspect]
     Dosage: UNSPECIFIED
     Dates: start: 20030101, end: 20030811
  3. CORDARONE [Suspect]
     Route: 051
     Dates: start: 20030616, end: 20030618
  4. SINTROM [Concomitant]
     Route: 065

REACTIONS (7)
  - ANXIETY [None]
  - ASTHENIA [None]
  - DEPRESSED LEVEL OF CONSCIOUSNESS [None]
  - HALLUCINATION, AUDITORY [None]
  - INSOMNIA [None]
  - NIGHTMARE [None]
  - TREMOR [None]
